FAERS Safety Report 12104136 (Version 1)
Quarter: 2016Q1

REPORT INFORMATION
  Report Type: Spontaneous
  Country: BR (occurrence: BR)
  Receive Date: 20160223
  Receipt Date: 20160223
  Transmission Date: 20160526
  Serious: Yes (Death, Hospitalization, Other)
  Sender: FDA-Public Use
  Company Number: BR-AMGEN-BRASP2016021276

PATIENT
  Sex: Female

DRUGS (1)
  1. ENBREL [Suspect]
     Active Substance: ETANERCEPT
     Indication: RHEUMATOID ARTHRITIS
     Dosage: 50 MG, QWK
     Route: 058

REACTIONS (6)
  - Peripheral swelling [Unknown]
  - Pain [Unknown]
  - Bacterial infection [Unknown]
  - Death [Fatal]
  - Thrombosis [Unknown]
  - Systemic infection [Unknown]

NARRATIVE: CASE EVENT DATE: 20150407
